FAERS Safety Report 6671423-5 (Version None)
Quarter: 2010Q2

REPORT INFORMATION
  Report Type: 
  Country: None (occurrence: None)
  Receive Date: 20100406
  Receipt Date: 20100406
  Transmission Date: 20101027
  Serious: Yes (Life-Threatening, Hospitalization)
  Sender: FDA-Public Use
  Company Number: None

PATIENT
  Sex: Female
  Weight: 74.8435 kg

DRUGS (1)
  1. AVIANE-28 [Suspect]
     Indication: CONTRACEPTION
     Dosage: 1 DAILY PO
     Route: 048
     Dates: start: 20090605, end: 20100303

REACTIONS (6)
  - ABDOMINAL PAIN [None]
  - AORTIC THROMBOSIS [None]
  - APPARENT LIFE THREATENING EVENT [None]
  - HEART RATE INCREASED [None]
  - PULMONARY EMBOLISM [None]
  - PULMONARY THROMBOSIS [None]
